FAERS Safety Report 24232147 (Version 1)
Quarter: 2024Q3

REPORT INFORMATION
  Report Type: Spontaneous
  Country: US (occurrence: None)
  Receive Date: 20240820
  Receipt Date: 20240820
  Transmission Date: 20241016
  Serious: Yes (Hospitalization)
  Sender: Public
  Company Number: None

PATIENT
  Age: 70 Year
  Sex: Female
  Weight: 68.4 kg

DRUGS (1)
  1. VYVGART HYTRULO [Suspect]
     Active Substance: EFGARTIGIMOD ALFA\HYALURONIDASE-QVFC
     Indication: Myasthenia gravis
     Dosage: 1008 MG WEEKLY SUBCUTANEOUS
     Route: 058
     Dates: start: 20240724, end: 20240808

REACTIONS (11)
  - Headache [None]
  - Dermatochalasis [None]
  - Periorbital swelling [None]
  - Vision blurred [None]
  - Ear pain [None]
  - Back pain [None]
  - Injection site rash [None]
  - Oral discomfort [None]
  - Abdominal pain upper [None]
  - Dizziness [None]
  - Toxic encephalopathy [None]

NARRATIVE: CASE EVENT DATE: 20240809
